FAERS Safety Report 9193837 (Version 1)
Quarter: 2013Q1

REPORT INFORMATION
  Report Type: Spontaneous
  Country: US (occurrence: US)
  Receive Date: 20130327
  Receipt Date: 20130327
  Transmission Date: 20140127
  Serious: Yes (Disabling)
  Sender: FDA-Public Use
  Company Number: US-ASTRAZENECA-2013SE17999

PATIENT
  Age: 719 Month
  Sex: Male
  Weight: 96.2 kg

DRUGS (2)
  1. NEXIUM [Suspect]
     Indication: GASTROOESOPHAGEAL REFLUX DISEASE
     Route: 048
  2. OTC MEDICATIONS [Concomitant]

REACTIONS (3)
  - Chronic obstructive pulmonary disease [Unknown]
  - Emphysema [Unknown]
  - Dyspepsia [Unknown]
